FAERS Safety Report 5355932-7 (Version None)
Quarter: 2007Q2

REPORT INFORMATION
  Report Type: 
  Country: None (occurrence: None)
  Receive Date: 20070530
  Receipt Date: 20070223
  Transmission Date: 20071010
  Serious: Yes (Other)
  Sender: FDA-Public Use
  Company Number: US200702004951

PATIENT
  Sex: Female

DRUGS (2)
  1. ZYPREXA [Suspect]
     Indication: NAUSEA
     Dosage: SEE IMAGE
     Dates: start: 20030101, end: 20050101
  2. ZYPREXA [Suspect]
     Indication: NAUSEA
     Dosage: SEE IMAGE
     Dates: start: 20070101

REACTIONS (5)
  - FOOD CRAVING [None]
  - INCREASED APPETITE [None]
  - POLLAKIURIA [None]
  - SOMNOLENCE [None]
  - WEIGHT INCREASED [None]
